FAERS Safety Report 8200765-7 (Version None)
Quarter: 2012Q1

REPORT INFORMATION
  Report Type: 
  Country: None (occurrence: None)
  Receive Date: 20120312
  Receipt Date: 20120305
  Transmission Date: 20120608
  Serious: Yes (Hospitalization, Other)
  Sender: FDA-Public Use
  Company Number: SE-BRISTOL-MYERS SQUIBB COMPANY-14843957

PATIENT
  Age: 54 Year
  Sex: Female

DRUGS (4)
  1. ORUDIS [Suspect]
     Dosage: ORUDIS RETARD PROLONGED RELEASE CAPSULE,HARD 200MG
     Dates: end: 20090501
  2. ORENCIA [Suspect]
     Indication: RHEUMATOID ARTHRITIS
     Dosage: INCREASED TO 750MG/MONTH ON 07-OCT-2008
     Dates: start: 20071023, end: 20090515
  3. OMEPRAZOLE [Concomitant]
     Dosage: ACTAVIS GASTRO-RESISTANT CAPSULE,HARD 20MG
     Dates: end: 20090501
  4. METHOTREXATE SODIUM [Suspect]
     Dosage: METOJECT SOLUTION FOR INJECTION, PRE-FILLED SYRINGE 10MG/ML
     Dates: end: 20090501

REACTIONS (4)
  - DRUG EFFECT DECREASED [None]
  - BLOOD PRESSURE INCREASED [None]
  - HEADACHE [None]
  - TUBULOINTERSTITIAL NEPHRITIS [None]
